FAERS Safety Report 16836480 (Version 4)
Quarter: 2020Q3

REPORT INFORMATION
  Report Type: Spontaneous
  Country: FI (occurrence: FI)
  Receive Date: 20190921
  Receipt Date: 20200923
  Transmission Date: 20201102
  Serious: Yes (Other)
  Sender: FDA-Public Use
  Company Number: FI-AUROBINDO-AUR-APL-2019-061000

PATIENT
  Age: 34 Year
  Sex: Male

DRUGS (41)
  1. AMITRIPTYLINE [Suspect]
     Active Substance: AMITRIPTYLINE
     Indication: BEHAVIOUR DISORDER
     Dosage: UNK
     Route: 065
  2. CANDESARTAN. [Suspect]
     Active Substance: CANDESARTAN
     Indication: BEHAVIOUR DISORDER
     Dosage: 16 MILLIGRAM, ONCE A DAY
     Route: 065
     Dates: start: 2017
  3. MACROGOL 3350 [Suspect]
     Active Substance: POLYETHYLENE GLYCOL 3350
     Indication: BEHAVIOUR DISORDER
     Dosage: 3 DOSAGE FORM, ONCE A DAY, (3 SACHETS PER DAY)
     Route: 065
  4. CARBAMAZEPINE. [Suspect]
     Active Substance: CARBAMAZEPINE
     Indication: BEHAVIOUR DISORDER
     Dosage: UNK
     Route: 065
  5. LEVOMEPROMAZINE [Suspect]
     Active Substance: LEVOMEPROMAZINE
     Indication: MENTAL DISORDER
  6. LORAZEPAM. [Suspect]
     Active Substance: LORAZEPAM
     Indication: BEHAVIOUR DISORDER
     Dosage: 3 MILLIGRAM, ONCE A DAY
     Route: 065
     Dates: start: 2017
  7. OLANZAPINE FILM COATED TABLETS [Suspect]
     Active Substance: OLANZAPINE
     Indication: AUTISM SPECTRUM DISORDER
     Dosage: 10 MILLIGRAM, ONCE A DAY
     Route: 065
     Dates: start: 2017
  8. OLANZAPINE FILM COATED TABLETS [Suspect]
     Active Substance: OLANZAPINE
     Indication: BEHAVIOUR DISORDER
  9. CARBAMAZEPINE. [Suspect]
     Active Substance: CARBAMAZEPINE
     Indication: SEIZURE
  10. RISPERIDONE. [Suspect]
     Active Substance: RISPERIDONE
     Indication: MENTAL DISORDER
     Dosage: 4 MILLIGRAM, ONCE A DAY
     Route: 065
     Dates: start: 2017
  11. ESCITALOPRAM [Suspect]
     Active Substance: ESCITALOPRAM OXALATE
     Indication: BEHAVIOUR DISORDER
  12. BISOPROLOL [Suspect]
     Active Substance: BISOPROLOL
     Indication: PROPHYLAXIS
     Dosage: UNK
     Route: 065
  13. MELATONIN [Suspect]
     Active Substance: MELATONIN
     Indication: BEHAVIOUR DISORDER
     Dosage: 3 MILLIGRAM, ONCE A DAY
     Route: 065
     Dates: start: 2017
  14. OXCARBAZEPINE. [Suspect]
     Active Substance: OXCARBAZEPINE
     Indication: SEIZURE
     Dosage: 900 MILLIGRAM, ONCE A DAY
     Route: 065
  15. ESCITALOPRAM [Suspect]
     Active Substance: ESCITALOPRAM OXALATE
     Indication: AUTISM SPECTRUM DISORDER
  16. LEVOMEPROMAZINE [Suspect]
     Active Substance: LEVOMEPROMAZINE
     Indication: BEHAVIOUR DISORDER
     Dosage: 100 MILLIGRAM, ONCE A DAY
     Route: 065
     Dates: start: 2017
  17. PANTOPRAZOLE [Suspect]
     Active Substance: PANTOPRAZOLE
     Indication: BEHAVIOUR DISORDER
     Dosage: 20 MILLIGRAM, ONCE A DAY
     Route: 065
     Dates: start: 2017
  18. OLANZAPINE FILM COATED TABLETS [Suspect]
     Active Substance: OLANZAPINE
     Indication: MENTAL DISORDER
  19. AMITRIPTYLINE [Suspect]
     Active Substance: AMITRIPTYLINE
     Indication: AUTISM SPECTRUM DISORDER
  20. LEVOMEPROMAZINE [Suspect]
     Active Substance: LEVOMEPROMAZINE
     Indication: AUTISM SPECTRUM DISORDER
  21. BISOPROLOL [Suspect]
     Active Substance: BISOPROLOL
     Indication: BEHAVIOUR DISORDER
  22. LORAZEPAM. [Suspect]
     Active Substance: LORAZEPAM
     Indication: AUTISM SPECTRUM DISORDER
  23. VALPROATE SODIUM. [Suspect]
     Active Substance: VALPROATE SODIUM
     Indication: SEIZURE
  24. QUETIAPINE. [Suspect]
     Active Substance: QUETIAPINE
     Indication: BEHAVIOUR DISORDER
     Dosage: UNK
     Route: 065
  25. QUETIAPINE. [Suspect]
     Active Substance: QUETIAPINE
     Indication: MENTAL DISORDER
  26. AMITRIPTYLINE [Suspect]
     Active Substance: AMITRIPTYLINE
     Indication: MENTAL DISORDER
  27. CANDESARTAN. [Suspect]
     Active Substance: CANDESARTAN
     Indication: PROPHYLAXIS
  28. TOPIRAMATE. [Suspect]
     Active Substance: TOPIRAMATE
     Indication: BEHAVIOUR DISORDER
     Dosage: UNK
     Route: 065
     Dates: start: 2015
  29. RISPERIDONE. [Suspect]
     Active Substance: RISPERIDONE
     Indication: BEHAVIOUR DISORDER
     Dosage: 3 MILLIGRAM, ONCE A DAY
     Route: 065
  30. ESCITALOPRAM [Suspect]
     Active Substance: ESCITALOPRAM OXALATE
     Indication: MENTAL DISORDER
     Dosage: 10 MILLIGRAM, ONCE A DAY
     Route: 065
     Dates: start: 2017
  31. METOPROLOL. [Suspect]
     Active Substance: METOPROLOL
     Indication: PROPHYLAXIS
     Dosage: UNK
     Route: 065
  32. CITALOPRAM [Suspect]
     Active Substance: CITALOPRAM HYDROBROMIDE
     Indication: AUTISM SPECTRUM DISORDER
  33. VALPROATE SODIUM. [Suspect]
     Active Substance: VALPROATE SODIUM
     Indication: MIGRAINE PROPHYLAXIS
     Dosage: 1200 MILLIGRAM, ONCE A DAY
     Route: 065
  34. VALPROATE SODIUM. [Suspect]
     Active Substance: VALPROATE SODIUM
     Indication: AFFECTIVE DISORDER
  35. QUETIAPINE. [Suspect]
     Active Substance: QUETIAPINE
     Indication: AUTISM SPECTRUM DISORDER
  36. TOPIRAMATE. [Suspect]
     Active Substance: TOPIRAMATE
     Indication: PROPHYLAXIS
  37. RISPERIDONE. [Suspect]
     Active Substance: RISPERIDONE
     Indication: AUTISM SPECTRUM DISORDER
  38. METOPROLOL. [Suspect]
     Active Substance: METOPROLOL
     Indication: BEHAVIOUR DISORDER
  39. CITALOPRAM [Suspect]
     Active Substance: CITALOPRAM HYDROBROMIDE
     Indication: BEHAVIOUR DISORDER
     Dosage: UNK
     Route: 065
  40. CITALOPRAM [Suspect]
     Active Substance: CITALOPRAM HYDROBROMIDE
     Indication: MENTAL DISORDER
  41. LORAZEPAM. [Suspect]
     Active Substance: LORAZEPAM
     Indication: MENTAL DISORDER

REACTIONS (10)
  - Aggression [Not Recovered/Not Resolved]
  - Behaviour disorder [Not Recovered/Not Resolved]
  - Condition aggravated [Not Recovered/Not Resolved]
  - Drug ineffective [Unknown]
  - Off label use [Unknown]
  - Multiple drug therapy [Not Recovered/Not Resolved]
  - Intentional product use issue [Not Recovered/Not Resolved]
  - Intentional self-injury [Not Recovered/Not Resolved]
  - Drug ineffective for unapproved indication [Not Recovered/Not Resolved]
  - Product use in unapproved indication [Unknown]

NARRATIVE: CASE EVENT DATE: 2015
